FAERS Safety Report 8563299-6 (Version None)
Quarter: 2012Q3

REPORT INFORMATION
  Report Type: 
  Country: None (occurrence: None)
  Receive Date: 20120802
  Receipt Date: 20120727
  Transmission Date: 20120928
  Serious: No
  Sender: FDA-Public Use
  Company Number: US-AMGEN-USASP2012042938

PATIENT
  Age: 58 Year
  Sex: Male

DRUGS (1)
  1. ENBREL [Suspect]
     Indication: RHEUMATOID ARTHRITIS
     Dosage: 50 MG, QWK
     Dates: start: 20030901

REACTIONS (8)
  - ARTHRALGIA [None]
  - HYPOHIDROSIS [None]
  - SKIN ULCER [None]
  - HYPOAESTHESIA [None]
  - ARTHROPOD BITE [None]
  - SCRATCH [None]
  - WEIGHT DECREASED [None]
  - STAPHYLOCOCCAL INFECTION [None]
